FAERS Safety Report 5872086-9 (Version None)
Quarter: 2008Q3

REPORT INFORMATION
  Report Type: 
  Country: None (occurrence: None)
  Receive Date: 20080905
  Receipt Date: 20080829
  Transmission Date: 20090109
  Serious: Yes (Hospitalization)
  Sender: FDA-Public Use
  Company Number: A0744979A

PATIENT
  Age: 45 Year
  Sex: Female
  Weight: 90.9 kg

DRUGS (27)
  1. AVANDIA [Suspect]
     Dosage: 4MG TWICE PER DAY
     Route: 048
     Dates: start: 20050101, end: 20070101
  2. GLUCOTROL [Concomitant]
     Dates: start: 20060101
  3. ACETAMINOPHEN [Concomitant]
  4. ADVAIR DISKUS 100/50 [Concomitant]
  5. ALBUTEROL [Concomitant]
  6. AMITRIPTYLINE HCL [Concomitant]
  7. AMOXICILLIN [Concomitant]
  8. AZITHROMYCIN [Concomitant]
  9. BENAZEPRIL HYDROCHLORIDE [Concomitant]
  10. CYCLOBENZAPRINE HCL [Concomitant]
  11. ENALAPRIL MALEATE [Concomitant]
  12. FLUCONAZOLE [Concomitant]
  13. FUROSEMIDE [Concomitant]
  14. GRIS-PEG [Concomitant]
  15. HYDROCODONE BITARTRATE [Concomitant]
  16. IPRATROPIUM BROMIDE [Concomitant]
  17. KETOROLAC TROMETHAMINE [Concomitant]
  18. KLOR-CON [Concomitant]
  19. LOTREL [Concomitant]
  20. METOPROLOL TARTRATE [Concomitant]
  21. NICOTINE [Concomitant]
  22. POTASSIUM CHLORIDE [Concomitant]
  23. PREMPRO [Concomitant]
  24. PROPOXYPHENE [Concomitant]
  25. SIMVASTATIN [Concomitant]
  26. SPIRIVA [Concomitant]
  27. ZETIA [Concomitant]

REACTIONS (2)
  - CARDIAC FAILURE CONGESTIVE [None]
  - MYOCARDIAL INFARCTION [None]
